FAERS Safety Report 25856199 (Version 1)
Quarter: 2025Q3

REPORT INFORMATION
  Report Type: Spontaneous
  Country: US (occurrence: US)
  Receive Date: 20250928
  Receipt Date: 20250928
  Transmission Date: 20251021
  Serious: Yes (Other)
  Sender: AMGEN
  Company Number: US-AMGEN-USASP2025189741

PATIENT
  Age: 61 Year
  Sex: Female

DRUGS (1)
  1. PREDNISONE [Suspect]
     Active Substance: PREDNISONE
     Indication: Asthma
     Route: 065

REACTIONS (6)
  - Obstructive sleep apnoea syndrome [Recovered/Resolved]
  - Haemoptysis [Recovered/Resolved]
  - Petechiae [Recovered/Resolved]
  - Ecchymosis [Unknown]
  - Cough [Recovered/Resolved]
  - Weight increased [Unknown]
